FAERS Safety Report 4330699-X (Version None)
Quarter: 2004Q1

REPORT INFORMATION
  Report Type: 
  Country: None (occurrence: None)
  Receive Date: 20040329
  Receipt Date: 20040318
  Transmission Date: 20041129
  Serious: Yes (Hospitalization)
  Sender: FDA-Public Use
  Company Number: 19394

PATIENT
  Age: 76 Year
  Sex: Male
  Weight: 74.8435 kg

DRUGS (6)
  1. NIASPAN [Suspect]
     Indication: LOW DENSITY LIPOPROTEIN INCREASED
     Dosage: 500 MG QHS PO
     Route: 048
     Dates: start: 20040305, end: 20040317
  2. COREG [Concomitant]
  3. FUROSEMIDE [Concomitant]
  4. DIGITEK [Concomitant]
  5. ALBUTEROL [Concomitant]
  6. ZOCOR [Concomitant]

REACTIONS (5)
  - COMA [None]
  - DYSPNOEA [None]
  - FLUSHING [None]
  - NAUSEA [None]
  - SYNCOPE [None]
